FAERS Safety Report 15059634 (Version 1)
Quarter: 2018Q2

REPORT INFORMATION
  Report Type: Spontaneous
  Country: US (occurrence: US)
  Receive Date: 20180625
  Receipt Date: 20180625
  Transmission Date: 20180711
  Serious: No
  Sender: FDA-Public Use
  Company Number: US-SA-2018SA162855

PATIENT
  Age: 35 Year
  Sex: Female

DRUGS (1)
  1. TERIFLUNOMIDE [Suspect]
     Active Substance: TERIFLUNOMIDE

REACTIONS (2)
  - Headache [Unknown]
  - Back pain [Unknown]

NARRATIVE: CASE EVENT DATE: 20180521
